FAERS Safety Report 23069185 (Version 1)
Quarter: 2023Q4

REPORT INFORMATION
  Report Type: Spontaneous
  Country: JP (occurrence: JP)
  Receive Date: 20231016
  Receipt Date: 20231016
  Transmission Date: 20240110
  Serious: Yes (Other)
  Sender: FDA-Public Use
  Company Number: JP-PFIZER INC-PV202300165348

PATIENT
  Age: 60 Year
  Sex: Male

DRUGS (2)
  1. SULFASALAZINE [Suspect]
     Active Substance: SULFASALAZINE
     Dosage: UNK
     Route: 048
  2. SULFASALAZINE [Suspect]
     Active Substance: SULFASALAZINE
     Dosage: SUPPOSITORIES

REACTIONS (17)
  - Haematochezia [Unknown]
  - Anal abscess [Unknown]
  - Purulence [Unknown]
  - Diarrhoea [Unknown]
  - Constipation [Unknown]
  - Gastrointestinal motility disorder [Unknown]
  - Haemorrhoids [Unknown]
  - Anal fistula [Unknown]
  - Abdominal pain [Unknown]
  - Pyrexia [Unknown]
  - Fatigue [Unknown]
  - Malaise [Unknown]
  - Dizziness [Unknown]
  - Palpitations [Unknown]
  - Decreased appetite [Unknown]
  - Weight decreased [Unknown]
  - Drug ineffective [Not Recovered/Not Resolved]
